FAERS Safety Report 15656102 (Version 7)
Quarter: 2019Q2

REPORT INFORMATION
  Report Type: Spontaneous
  Country: US (occurrence: US)
  Receive Date: 20181126
  Receipt Date: 20190530
  Transmission Date: 20190711
  Serious: Yes (Hospitalization, Other)
  Sender: FDA-Public Use
  Company Number: US-PFIZER INC-2018485308

PATIENT
  Age: 87 Year
  Sex: Female
  Weight: 65.32 kg

DRUGS (3)
  1. CELEBREX [Suspect]
     Active Substance: CELECOXIB
     Indication: PAIN IN EXTREMITY
     Dosage: 200 MG, 1X/DAY
  2. WARFARIN [Concomitant]
     Active Substance: WARFARIN
     Dosage: 3 MG, UNK
  3. CELEBREX [Suspect]
     Active Substance: CELECOXIB
     Indication: RHEUMATOID ARTHRITIS
     Dosage: 400 MG, DAILY (ONE IN THE MORNING AND ONE AT NIGHT)
     Route: 048

REACTIONS (8)
  - Nocturia [Unknown]
  - Intentional product misuse [Unknown]
  - Drug ineffective [Unknown]
  - Feeling abnormal [Unknown]
  - Renal disorder [Not Recovered/Not Resolved]
  - Diabetes mellitus [Recovered/Resolved]
  - Gait disturbance [Unknown]
  - Coagulopathy [Not Recovered/Not Resolved]

NARRATIVE: CASE EVENT DATE: 2018
